FAERS Safety Report 6988729-2 (Version None)
Quarter: 2010Q3

REPORT INFORMATION
  Report Type: 
  Country: None (occurrence: None)
  Receive Date: 20100916
  Receipt Date: 20100908
  Transmission Date: 20110219
  Serious: Yes (Other)
  Sender: FDA-Public Use
  Company Number: US-ABBOTT-10P-163-0669799-00

PATIENT
  Sex: Female
  Weight: 59.928 kg

DRUGS (3)
  1. HUMIRA [Suspect]
     Indication: CROHN'S DISEASE
     Dates: start: 20090914
  2. PAXIL [Concomitant]
     Indication: DEPRESSION
     Dates: start: 20090101
  3. XANAX [Concomitant]
     Indication: DEPRESSION
     Dates: start: 20090101

REACTIONS (3)
  - SQUAMOUS CELL CARCINOMA [None]
  - VAGINAL LESION [None]
  - WEIGHT INCREASED [None]
